FAERS Safety Report 24111675 (Version 2)
Quarter: 2024Q3

REPORT INFORMATION
  Report Type: Spontaneous
  Country: TR (occurrence: TR)
  Receive Date: 20240718
  Receipt Date: 20240810
  Transmission Date: 20241016
  Serious: Yes (Other)
  Sender: TEVA
  Company Number: TR-TEVA-VS-3219504

PATIENT
  Age: 76 Year
  Sex: Male

DRUGS (6)
  1. GEMCITABINE [Suspect]
     Active Substance: GEMCITABINE
     Indication: Transitional cell carcinoma metastatic
     Dosage: RECEIVED A TOTAL OF 8 CYCLES
     Route: 065
     Dates: start: 2022, end: 2022
  2. CISPLATIN [Suspect]
     Active Substance: CISPLATIN
     Indication: Transitional cell carcinoma metastatic
     Dosage: RECEIVED TOTAL OF 8 CYCLES
     Route: 065
     Dates: start: 2022, end: 2022
  3. BALVERSA [Suspect]
     Active Substance: ERDAFITINIB
     Indication: Transitional cell carcinoma metastatic
     Route: 048
     Dates: start: 2023
  4. BALVERSA [Suspect]
     Active Substance: ERDAFITINIB
     Indication: Transitional cell carcinoma metastatic
     Route: 048
     Dates: start: 202302, end: 2023
  5. PEMBROLIZUMAB [Suspect]
     Active Substance: PEMBROLIZUMAB
     Indication: Transitional cell carcinoma metastatic
     Dosage: RECEIVED A TOTAL OF 8 CYCLES
     Route: 065
     Dates: start: 2022, end: 2022
  6. NIVOLUMAB [Suspect]
     Active Substance: NIVOLUMAB
     Indication: Transitional cell carcinoma metastatic
     Dosage: RECEIVED 3 CYCLES
     Route: 065
     Dates: start: 2022, end: 2022

REACTIONS (4)
  - Serous retinal detachment [Recovering/Resolving]
  - Ulcerative keratitis [Recovering/Resolving]
  - Drug ineffective [Unknown]
  - Dry eye [Recovering/Resolving]

NARRATIVE: CASE EVENT DATE: 20230101
